FAERS Safety Report 13827987 (Version 3)
Quarter: 2017Q4

REPORT INFORMATION
  Report Type: Report from Study
  Country: None (occurrence: US)
  Receive Date: 20170803
  Receipt Date: 20171228
  Transmission Date: 20180320
  Serious: Yes (Hospitalization)
  Sender: FDA-Public Use
  Company Number: US-ABBVIE-17K-163-2058281-00

PATIENT
  Age: 17 Year
  Sex: Female

DRUGS (2)
  1. HUMIRA [Suspect]
     Active Substance: ADALIMUMAB
     Route: 058
     Dates: start: 201710
  2. HUMIRA [Suspect]
     Active Substance: ADALIMUMAB
     Indication: JUVENILE IDIOPATHIC ARTHRITIS
     Route: 058
     Dates: start: 2012, end: 201707

REACTIONS (10)
  - Lethargy [Not Recovered/Not Resolved]
  - Blood creatine increased [Not Recovered/Not Resolved]
  - Escherichia urinary tract infection [Not Recovered/Not Resolved]
  - Hypotension [Recovered/Resolved]
  - Pyelonephritis [Recovered/Resolved]
  - Vomiting [Not Recovered/Not Resolved]
  - Sepsis [Not Recovered/Not Resolved]
  - Dysuria [Recovered/Resolved]
  - Flank pain [Recovered/Resolved]
  - Kidney enlargement [Unknown]

NARRATIVE: CASE EVENT DATE: 201707
